FAERS Safety Report 12138310 (Version 1)
Quarter: 2016Q1

REPORT INFORMATION
  Report Type: Spontaneous
  Country: AU (occurrence: AU)
  Receive Date: 20160302
  Receipt Date: 20160302
  Transmission Date: 20160526
  Serious: Yes (Hospitalization)
  Sender: FDA-Public Use
  Company Number: AU-MYLANLABS-2016M1009052

PATIENT

DRUGS (1)
  1. AZATHIOPRINE. [Suspect]
     Active Substance: AZATHIOPRINE
     Indication: DERMATITIS
     Dosage: 50 MG DAILY
     Route: 065

REACTIONS (4)
  - Bone marrow failure [Unknown]
  - Nail discolouration [Unknown]
  - Diffuse alopecia [Unknown]
  - Hypoalbuminaemia [Unknown]
